FAERS Safety Report 8838524 (Version 1)
Quarter: 2012Q4

REPORT INFORMATION
  Report Type: 
  Country: US (occurrence: US)
  Receive Date: 20121012
  Receipt Date: 20121012
  Transmission Date: 20130627
  Serious: Yes (Other)
  Sender: FDA-Public Use
  Company Number: US-PFIZER INC-2012253464

PATIENT
  Age: 41 Year
  Sex: Male
  Weight: 93 kg

DRUGS (8)
  1. NEURONTIN [Suspect]
     Indication: ANXIETY
     Dosage: 300 mg, 3x/day
     Dates: start: 201209
  2. NEURONTIN [Suspect]
     Dosage: 300 mg, 2x/day
  3. NEURONTIN [Suspect]
     Dosage: 300 mg, 1x/day
     Dates: start: 20121009
  4. CLONIDINE [Concomitant]
     Indication: ANXIETY
     Dosage: 0.1 mg, daily at night
  5. WELLBUTRIN [Concomitant]
     Indication: ANXIETY
     Dosage: 100 mg, daily
  6. REMERON [Concomitant]
     Indication: ANXIETY
     Dosage: 45 mg, daily at night
  7. KLONOPIN [Concomitant]
     Indication: ANXIETY
     Dosage: 1 mg, 3x/day
  8. AMBIEN [Concomitant]
     Indication: ANXIETY
     Dosage: 10 mg, as needed at night

REACTIONS (15)
  - Suicidal ideation [Not Recovered/Not Resolved]
  - Vision blurred [Not Recovered/Not Resolved]
  - Amnesia [Not Recovered/Not Resolved]
  - Coordination abnormal [Not Recovered/Not Resolved]
  - Balance disorder [Not Recovered/Not Resolved]
  - Disorientation [Not Recovered/Not Resolved]
  - Feeling abnormal [Not Recovered/Not Resolved]
  - Ear discomfort [Not Recovered/Not Resolved]
  - Headache [Not Recovered/Not Resolved]
  - Cough [Not Recovered/Not Resolved]
  - Oropharyngeal pain [Not Recovered/Not Resolved]
  - Insomnia [Not Recovered/Not Resolved]
  - Agitation [Not Recovered/Not Resolved]
  - Confusional state [Not Recovered/Not Resolved]
  - Crying [Not Recovered/Not Resolved]
